FAERS Safety Report 21810600 (Version 3)
Quarter: 2023Q1

REPORT INFORMATION
  Report Type: Spontaneous
  Country: CA (occurrence: CA)
  Receive Date: 20230103
  Receipt Date: 20230322
  Transmission Date: 20230417
  Serious: Yes (Hospitalization)
  Sender: FDA-Public Use
  Company Number: CA-PFIZER INC-202200833925

PATIENT
  Age: 56 Year
  Sex: Female
  Weight: 86.2 kg

DRUGS (8)
  1. RUXIENCE [Suspect]
     Active Substance: RITUXIMAB-PVVR
     Indication: Chronic inflammatory demyelinating polyradiculoneuropathy
     Dosage: 1000 MG, DAY 1 AND 15
     Route: 042
     Dates: start: 20221206
  2. AVENTYL [Concomitant]
     Active Substance: NORTRIPTYLINE HYDROCHLORIDE
     Dosage: 1 DF
  3. GABAPENTIN [Concomitant]
     Active Substance: GABAPENTIN
     Dosage: 2700 MG
  4. LOXAPINE [Concomitant]
     Active Substance: LOXAPINE
     Dosage: 1 DF
  5. HUMAN IMMUNOGLOBULIN G [Concomitant]
     Active Substance: HUMAN IMMUNOGLOBULIN G
     Dosage: UNK, WEEKLY
     Route: 058
  6. PROPRANOLOL HYDROCHLORIDE [Concomitant]
     Active Substance: PROPRANOLOL HYDROCHLORIDE
     Dosage: 1 DF
  7. RAMIPRIL [Concomitant]
     Active Substance: RAMIPRIL
     Dosage: 1 DF
  8. HIZENTRA [Concomitant]
     Active Substance: HUMAN IMMUNOGLOBULIN G
     Dosage: 1 G/KG IN DIVIDED DOSES OVER THE COURSE OF THE MONTH

REACTIONS (14)
  - White blood cell disorder [Unknown]
  - Condition aggravated [Not Recovered/Not Resolved]
  - Gait inability [Recovered/Resolved]
  - Decreased immune responsiveness [Unknown]
  - Pneumonia [Recovered/Resolved]
  - Off label use [Unknown]
  - Pain [Recovered/Resolved]
  - Cough [Not Recovered/Not Resolved]
  - Muscle spasms [Unknown]
  - Depressed mood [Unknown]
  - Feeling of despair [Unknown]
  - Hypoaesthesia [Unknown]
  - Muscular weakness [Unknown]
  - Malaise [Unknown]

NARRATIVE: CASE EVENT DATE: 20220101
